FAERS Safety Report 5256437-4 (Version None)
Quarter: 2007Q1

REPORT INFORMATION
  Report Type: 
  Country: None (occurrence: None)
  Receive Date: 20061204
  Receipt Date: 20060912
  Transmission Date: 20070707
  Serious: No
  Sender: FDA-Public Use
  Company Number: 2006-BP-10756BP

PATIENT
  Age: 61 Year
  Sex: Female

DRUGS (2)
  1. SPIRIVA [Suspect]
     Indication: CHRONIC OBSTRUCTIVE PULMONARY DISEASE
     Dosage: 18 MCG 918 MCG, 1 IN 1 D) IH
     Route: 055
     Dates: start: 20050101
  2. SPIRIVA [Suspect]
     Indication: EMPHYSEMA
     Dosage: 18 MCG 918 MCG, 1 IN 1 D) IH
     Route: 055
     Dates: start: 20050101

REACTIONS (1)
  - DYSPNOEA [None]
